FAERS Safety Report 7837416-7 (Version None)
Quarter: 2011Q4

REPORT INFORMATION
  Report Type: 
  Country: None (occurrence: None)
  Receive Date: 20111024
  Receipt Date: 20110415
  Transmission Date: 20120403
  Serious: No
  Sender: FDA-Public Use
  Company Number: US-ABBOTT-11P-163-0720349-00

PATIENT
  Sex: Female
  Weight: 63.56 kg

DRUGS (3)
  1. LUPRON DEPOT [Suspect]
     Indication: OVARIAN DISORDER
  2. LUPRON DEPOT [Suspect]
     Indication: ABDOMINAL PAIN UPPER
     Dates: start: 20110201
  3. LORTAB [Concomitant]
     Indication: PAIN
     Dosage: RARELY TAKES

REACTIONS (2)
  - HOT FLUSH [None]
  - DIZZINESS [None]
